FAERS Safety Report 9032645 (Version 1)
Quarter: 2013Q1

REPORT INFORMATION
  Report Type: Spontaneous
  Country: US (occurrence: US)
  Receive Date: 20130125
  Receipt Date: 20130125
  Transmission Date: 20140127
  Serious: Yes (Hospitalization)
  Sender: FDA-Public Use
  Company Number: US-009507513-1301USA002915

PATIENT
  Sex: Female

DRUGS (6)
  1. SINGULAIR [Suspect]
     Route: 048
  2. NICOTINE [Suspect]
  3. DIAZEPAM [Suspect]
     Route: 048
  4. KEPPRA [Suspect]
  5. TEGRETOL [Suspect]
  6. THEOPHYLLINE [Suspect]

REACTIONS (5)
  - Dyspnoea [Unknown]
  - Cough [Unknown]
  - Back pain [Unknown]
  - Asthma [Unknown]
  - Fatigue [Unknown]
